FAERS Safety Report 7068812-6 (Version None)
Quarter: 2010Q4

REPORT INFORMATION
  Report Type: 
  Country: None (occurrence: None)
  Receive Date: 20101027
  Receipt Date: 20101027
  Transmission Date: 20110411
  Serious: Yes (Hospitalization)
  Sender: FDA-Public Use
  Company Number: None

PATIENT
  Age: 45 Year
  Sex: Male
  Weight: 79.3795 kg

DRUGS (6)
  1. OXYCONTIN [Suspect]
     Indication: BACK PAIN
     Dosage: 40 MG TWICE A DAY PO
     Route: 048
     Dates: start: 20101011, end: 20101012
  2. OXYCONTIN [Suspect]
     Dosage: 20 MG TWICE A DAY PO
     Route: 048
  3. PROTONIX [Concomitant]
  4. DIAZEPAM [Concomitant]
  5. TYLOX [Concomitant]
  6. MULTI-VITAMIN [Concomitant]

REACTIONS (10)
  - CHEST PAIN [None]
  - DRUG HYPERSENSITIVITY [None]
  - HEADACHE [None]
  - HYPOAESTHESIA [None]
  - HYPOVENTILATION [None]
  - INCORRECT DOSE ADMINISTERED [None]
  - INSOMNIA [None]
  - NAUSEA [None]
  - PRODUCT FORMULATION ISSUE [None]
  - VOMITING [None]
